FAERS Safety Report 10719396 (Version 2)
Quarter: 2015Q1

REPORT INFORMATION
  Report Type: Spontaneous
  Country: US (occurrence: US)
  Receive Date: 20150119
  Receipt Date: 20150119
  Transmission Date: 20150721
  Serious: No
  Sender: FDA-Public Use
  Company Number: US-UNITED THERAPEUTICS-UNT-2014-004005

PATIENT
  Age: 7 Year
  Sex: Female
  Weight: 27.21 kg

DRUGS (3)
  1. REMODULIN [Suspect]
     Active Substance: TREPROSTINIL
     Indication: PULMONARY ARTERIAL HYPERTENSION
     Dosage: 0.066 ?G/KG/MIN, CONTINUING
     Route: 058
     Dates: start: 20121229
  2. REVATIO [Concomitant]
     Active Substance: SILDENAFIL CITRATE
     Indication: PRODUCT USED FOR UNKNOWN INDICATION
  3. WARFARIN [Concomitant]
     Active Substance: WARFARIN
     Indication: PRODUCT USED FOR UNKNOWN INDICATION

REACTIONS (12)
  - Infusion site pain [Unknown]
  - Infusion site pruritus [Unknown]
  - Infusion site vesicles [Unknown]
  - Infusion site bruising [Unknown]
  - Infusion site oedema [Unknown]
  - Injection site discharge [Recovered/Resolved]
  - Infusion site induration [Unknown]
  - Infusion site pustule [Recovered/Resolved]
  - Dermatitis contact [Unknown]
  - Infusion site irritation [Unknown]
  - Infusion site mass [Unknown]
  - Rash [Unknown]

NARRATIVE: CASE EVENT DATE: 20140718
